FAERS Safety Report 7240209-5 (Version None)
Quarter: 2011Q1

REPORT INFORMATION
  Report Type: 
  Country: None (occurrence: None)
  Receive Date: 20110113
  Receipt Date: 20101229
  Transmission Date: 20110831
  Serious: Yes (Death, Hospitalization)
  Sender: FDA-Public Use
  Company Number: UTC-003559

PATIENT
  Age: 47 Year
  Sex: Male
  Weight: 72.7 kg

DRUGS (9)
  1. TYVASO [Suspect]
     Indication: PULMONARY HYPERTENSION
     Dosage: (24 MCG, 1 D), INHALATION
     Route: 055
     Dates: start: 20100401, end: 20101126
  2. REMODULIN (INJECTION FOR INFUSION) [Concomitant]
  3. PROCRIT [Concomitant]
  4. EXJADE [Concomitant]
  5. OXYGEN (OXYGEN) [Concomitant]
  6. MULTIVITAMIN (MULTIVITAMIN /00831701/) (TABLETS) [Concomitant]
  7. REVATIO [Concomitant]
  8. TRACLEER [Concomitant]
  9. FOLIC ACID [Concomitant]

REACTIONS (14)
  - CONVULSION [None]
  - AMMONIA INCREASED [None]
  - RIGHT VENTRICULAR DYSFUNCTION [None]
  - TRICUSPID VALVE INCOMPETENCE [None]
  - SYNCOPE [None]
  - URINARY INCONTINENCE [None]
  - BUNDLE BRANCH BLOCK RIGHT [None]
  - RENAL IMPAIRMENT [None]
  - RIGHT VENTRICULAR HYPERTROPHY [None]
  - RIGHT VENTRICULAR FAILURE [None]
  - QRS AXIS ABNORMAL [None]
  - HYPERKALAEMIA [None]
  - HEPATIC FAILURE [None]
  - OLIGURIA [None]
